FAERS Safety Report 18228883 (Version 2)
Quarter: 2020Q4

REPORT INFORMATION
  Report Type: Report from Study
  Country: US (occurrence: US)
  Receive Date: 20200903
  Receipt Date: 20201015
  Transmission Date: 20210113
  Serious: No
  Sender: FDA-Public Use
  Company Number: US-JNJFOC-20200840318

PATIENT
  Age: 42 Year
  Sex: Female
  Weight: 76.27 kg

DRUGS (2)
  1. SPRAVATO [Suspect]
     Active Substance: ESKETAMINE
     Indication: DEPRESSION
  2. SPRAVATO [Suspect]
     Active Substance: ESKETAMINE
     Dates: start: 20200825, end: 20200825

REACTIONS (2)
  - Underdose [Unknown]
  - Device failure [Unknown]

NARRATIVE: CASE EVENT DATE: 20200825
